FAERS Safety Report 8338102-X (Version None)
Quarter: 2012Q2

REPORT INFORMATION
  Report Type: 
  Country: None (occurrence: None)
  Receive Date: 20120504
  Receipt Date: 20120430
  Transmission Date: 20120825
  Serious: Yes (Other)
  Sender: FDA-Public Use
  Company Number: PHHY2012CA037693

PATIENT
  Sex: Female

DRUGS (1)
  1. GILENYA [Suspect]
     Indication: MULTIPLE SCLEROSIS
     Dosage: 0.5 MG, QD
     Route: 048
     Dates: start: 20110912, end: 20120201

REACTIONS (5)
  - SINUSITIS [None]
  - DRUG INEFFECTIVE [None]
  - IMMUNODEFICIENCY [None]
  - INFLUENZA [None]
  - CENTRAL NERVOUS SYSTEM LESION [None]
